FAERS Safety Report 7814049-X (Version None)
Quarter: 2011Q4

REPORT INFORMATION
  Report Type: 
  Country: None (occurrence: None)
  Receive Date: 20111014
  Receipt Date: 20111012
  Transmission Date: 20120403
  Serious: Yes (Life-Threatening, Hospitalization)
  Sender: FDA-Public Use
  Company Number: JP-B.I. PHARMACEUTICALS,INC./RIDGEFIELD-2011-BP-21172NB

PATIENT
  Sex: Female
  Weight: 47 kg

DRUGS (6)
  1. WHITE PETROLATUM [Concomitant]
     Indication: DRY SKIN
     Dosage: 5 G
     Route: 062
     Dates: start: 20110421
  2. TETRAMIDE [Concomitant]
     Indication: INSOMNIA
     Dosage: 10 MG
     Route: 048
     Dates: start: 20100720, end: 20110508
  3. MAGNESIUM SULFATE [Concomitant]
     Indication: CONSTIPATION
     Dosage: 1500 MG
     Route: 048
     Dates: start: 20100318
  4. PRADAXA [Suspect]
     Indication: ATRIAL FIBRILLATION
     Dosage: 220 MG
     Route: 048
     Dates: start: 20110419, end: 20110509
  5. VOLTAREN [Concomitant]
     Indication: MYALGIA
     Dosage: 5 G
     Route: 062
     Dates: start: 20071121
  6. RINDERON VG [Concomitant]
     Indication: ECZEMA
     Dosage: 0.5 G
     Route: 062
     Dates: start: 20110418, end: 20110425

REACTIONS (5)
  - VOMITING [None]
  - PNEUMONIA ASPIRATION [None]
  - NASOPHARYNGITIS [None]
  - ULCER [None]
  - GASTRIC HAEMORRHAGE [None]
